FAERS Safety Report 5294432-X (Version None)
Quarter: 2007Q2

REPORT INFORMATION
  Report Type: 
  Country: None (occurrence: None)
  Receive Date: 20070409
  Receipt Date: 20070409
  Transmission Date: 20071010
  Serious: Yes (Life-Threatening)
  Sender: FDA-Public Use
  Company Number: None

PATIENT
  Age: 48 Year
  Sex: Female
  Weight: 72.5755 kg

DRUGS (1)
  1. METHOTREXATE [Suspect]
     Indication: PSORIASIS
     Dosage: 10 MG A WEEK FOR 2 MONTH PO 7.5 MG WEEKLY FOR 4 MONTH PO
     Route: 048
     Dates: start: 20050222, end: 20050823

REACTIONS (3)
  - HEPATIC FIBROSIS [None]
  - HEPATIC PAIN [None]
  - HEPATIC STEATOSIS [None]
